FAERS Safety Report 25962792 (Version 1)
Quarter: 2025Q4

REPORT INFORMATION
  Report Type: Spontaneous
  Country: JP (occurrence: JP)
  Receive Date: 20251027
  Receipt Date: 20251027
  Transmission Date: 20260117
  Serious: Yes (Other)
  Sender: CHEPLAPHARM
  Company Number: JP-CHEPLA-2025012176

PATIENT
  Age: 32 Year
  Sex: Female

DRUGS (7)
  1. OLANZAPINE [Suspect]
     Active Substance: OLANZAPINE
     Indication: Bipolar disorder
  2. OLANZAPINE [Suspect]
     Active Substance: OLANZAPINE
     Indication: Bipolar disorder
     Route: 030
  3. OLANZAPINE [Suspect]
     Active Substance: OLANZAPINE
     Indication: Bipolar disorder
  4. VALPROATE SODIUM [Concomitant]
     Active Substance: VALPROATE SODIUM
     Indication: Bipolar disorder
  5. ARIPIPRAZOLE [Concomitant]
     Active Substance: ARIPIPRAZOLE
     Indication: Bipolar disorder
  6. ARIPIPRAZOLE [Concomitant]
     Active Substance: ARIPIPRAZOLE
     Indication: Akathisia
  7. ASENAPINE [Concomitant]
     Active Substance: ASENAPINE
     Indication: Dysgeusia

REACTIONS (7)
  - Hallucination, auditory [Unknown]
  - Adrenal insufficiency [Unknown]
  - Post-acute COVID-19 syndrome [Unknown]
  - Mania [Recovered/Resolved]
  - Delusion [Unknown]
  - Metabolic alkalosis [Unknown]
  - Weight increased [Unknown]

NARRATIVE: CASE EVENT DATE: 20240301
